FAERS Safety Report 9807992 (Version 3)
Quarter: 2014Q3

REPORT INFORMATION
  Report Type: Spontaneous
  Country: US (occurrence: US)
  Receive Date: 20140110
  Receipt Date: 20140822
  Transmission Date: 20150326
  Serious: Yes (Disabling, Other)
  Sender: FDA-Public Use
  Company Number: US-009507513-1401USA002587

PATIENT
  Sex: Female
  Weight: 58.5 kg

DRUGS (5)
  1. CALCIUM (UNSPECIFIED) [Concomitant]
     Active Substance: CALCIUM
     Indication: OSTEOPENIA
  2. VITAMINS (UNSPECIFIED) [Concomitant]
     Active Substance: VITAMINS
     Indication: OSTEOPENIA
  3. FOSAMAX [Suspect]
     Active Substance: ALENDRONATE SODIUM
     Indication: OSTEOPENIA
     Dosage: 70 MG, QW
     Route: 048
     Dates: start: 2002, end: 200802
  4. FOSAMAX [Suspect]
     Active Substance: ALENDRONATE SODIUM
     Dosage: 70 MG, QOW
     Route: 048
  5. ALENDRONATE SODIUM. [Suspect]
     Active Substance: ALENDRONATE SODIUM
     Indication: OSTEOPENIA
     Dosage: 70 MG, QW
     Route: 048
     Dates: start: 200802, end: 201006

REACTIONS (26)
  - Cardiac pacemaker insertion [Unknown]
  - Hypercholesterolaemia [Unknown]
  - Exostosis of jaw [Unknown]
  - Stomatitis [Unknown]
  - Oral infection [Unknown]
  - Fatigue [Unknown]
  - Osteoporosis [Unknown]
  - Osteonecrosis of jaw [Not Recovered/Not Resolved]
  - Exposed bone in jaw [Unknown]
  - Head injury [Unknown]
  - Hepatitis A [Unknown]
  - Arrhythmia [Unknown]
  - Inappropriate schedule of drug administration [Unknown]
  - Back pain [Unknown]
  - Dizziness [Unknown]
  - Loss of consciousness [Unknown]
  - Endodontic procedure [Unknown]
  - Temporomandibular joint syndrome [Unknown]
  - Cholecystectomy [Unknown]
  - Foot fracture [Unknown]
  - Hiatus hernia [Unknown]
  - Blister [Unknown]
  - Lumbar vertebral fracture [Unknown]
  - Cardiac murmur [Unknown]
  - Hypothyroidism [Unknown]
  - Snoring [Unknown]

NARRATIVE: CASE EVENT DATE: 200205
